FAERS Safety Report 6279924-9 (Version None)
Quarter: 2009Q3

REPORT INFORMATION
  Report Type: 
  Country: None (occurrence: None)
  Receive Date: 20090723
  Receipt Date: 20090504
  Transmission Date: 20100115
  Serious: No
  Sender: FDA-Public Use
  Company Number: US-AMGEN-KDL345734

PATIENT
  Sex: Female
  Weight: 69.5 kg

DRUGS (2)
  1. PROCRIT [Suspect]
     Indication: RENAL FAILURE CHRONIC
     Route: 058
     Dates: end: 20090330
  2. UNSPECIFIED MEDICATION [Concomitant]

REACTIONS (1)
  - HAEMOGLOBIN DECREASED [None]
